FAERS Safety Report 10569386 (Version 6)
Quarter: 2016Q4

REPORT INFORMATION
  Report Type: Spontaneous
  Country: US (occurrence: US)
  Receive Date: 20141106
  Receipt Date: 20161221
  Transmission Date: 20170206
  Serious: Yes (Life-Threatening, Hospitalization, Disabling, Other)
  Sender: FDA-Public Use
  Company Number: US-009507513-1411USA000586

PATIENT
  Sex: Female
  Weight: 52.15 kg

DRUGS (4)
  1. VITAMINS (UNSPECIFIED) [Concomitant]
     Active Substance: VITAMINS
     Indication: PRODUCT USED FOR UNKNOWN INDICATION
     Dosage: 1 DF, QD
     Route: 048
     Dates: start: 1996
  2. FOSAMAX [Suspect]
     Active Substance: ALENDRONATE SODIUM
     Dosage: 70 MG, UNKNOWN
     Route: 048
     Dates: start: 200307, end: 200411
  3. FOSAMAX [Suspect]
     Active Substance: ALENDRONATE SODIUM
     Indication: OSTEOPOROSIS
     Dosage: 10 MG, UNKNOWN
     Route: 048
     Dates: start: 200106, end: 200307
  4. FOSAMAX [Suspect]
     Active Substance: ALENDRONATE SODIUM
     Dosage: 70 MG, QW
     Route: 048
     Dates: start: 200608, end: 200905

REACTIONS (44)
  - Femur fracture [Recovered/Resolved]
  - Migraine [Not Recovered/Not Resolved]
  - Infection [Unknown]
  - Tibia fracture [Unknown]
  - Ligament disorder [Unknown]
  - Fibula fracture [Unknown]
  - Tibia fracture [Unknown]
  - Hypertension [Unknown]
  - Depression [Unknown]
  - Device failure [Unknown]
  - Hip fracture [Unknown]
  - Organising pneumonia [Unknown]
  - Staphylococcal infection [Unknown]
  - Osteopenia [Unknown]
  - Femur fracture [Unknown]
  - Tooth disorder [Unknown]
  - Arthralgia [Not Recovered/Not Resolved]
  - Fall [Unknown]
  - Cerebrovascular accident [Unknown]
  - Nerve injury [Recovering/Resolving]
  - Pneumonia [Unknown]
  - Fractured coccyx [Unknown]
  - Coronary artery disease [Unknown]
  - Hypercholesterolaemia [Not Recovered/Not Resolved]
  - Fall [Unknown]
  - Lower limb fracture [Unknown]
  - Vasomotor rhinitis [Unknown]
  - Periprosthetic fracture [Unknown]
  - Osteolysis [Unknown]
  - Emotional distress [Unknown]
  - Femur fracture [Unknown]
  - Fall [Unknown]
  - Fall [Unknown]
  - Antiphospholipid syndrome [Unknown]
  - Cardiogenic shock [Unknown]
  - Bursitis [Unknown]
  - Neutrophil count increased [Unknown]
  - Femur fracture [Unknown]
  - Ulna fracture [Unknown]
  - Fibula fracture [Unknown]
  - Sepsis [Unknown]
  - Myocardial infarction [Unknown]
  - Sepsis [Unknown]
  - Pain [Unknown]

NARRATIVE: CASE EVENT DATE: 200107
